FAERS Safety Report 8553954-6 (Version None)
Quarter: 2012Q3

REPORT INFORMATION
  Report Type: 
  Country: None (occurrence: None)
  Receive Date: 20120731
  Receipt Date: 20120727
  Transmission Date: 20120928
  Serious: Yes (Hospitalization, Other)
  Sender: FDA-Public Use
  Company Number: US-BAYER-2012-055893

PATIENT
  Age: 23 Year
  Sex: Male

DRUGS (38)
  1. KOGENATE FS [Suspect]
     Dosage: 4260 U
     Dates: start: 20120205
  2. KOGENATE FS [Suspect]
     Dosage: 11264 U
     Dates: start: 20120310
  3. KOGENATE FS [Suspect]
     Dosage: 5120 U
     Dates: start: 20120311
  4. KOGENATE FS [Suspect]
     Dosage: 3063 U
     Dates: start: 20120207
  5. KOGENATE FS [Suspect]
     Dosage: 4096 U
     Dates: start: 20120310
  6. KOGENATE FS [Suspect]
     Dosage: 4156 U AND 4096 U
     Dates: start: 20120315
  7. KOGENATE FS [Suspect]
     Dosage: 264 U, 1039 U AND 9351 U
     Dates: start: 20120407
  8. KOGENATE FS [Suspect]
     Dosage: 4156 U
     Dates: start: 20120410
  9. KOGENATE FS [Suspect]
     Dosage: 3102 U AND 536 U
     Dates: start: 20120529
  10. KOGENATE FS [Suspect]
     Dosage: 5 IU/ KG/ HR CONTINUOUS INFUSION
     Dates: start: 20120401, end: 20120401
  11. KOGENATE FS [Suspect]
     Dosage: 4260 U
     Dates: start: 20120206
  12. KOGENATE FS [Suspect]
     Dosage: 4260 U
     Dates: start: 20120206
  13. KOGENATE FS [Suspect]
     Dosage: 3063 U
     Dates: start: 20120207
  14. KOGENATE FS [Suspect]
     Dosage: 3063 U
     Dates: start: 20120208
  15. KOGENATE FS [Suspect]
     Dosage: 4084 U
     Dates: start: 20120210
  16. KOGENATE FS [Suspect]
     Dosage: 2645 U
     Dates: start: 20120312
  17. KOGENATE FS [Suspect]
     Dosage: 7168 U
     Dates: start: 20120312
  18. KOGENATE FS [Suspect]
     Dosage: 3195 U AND 536 U
     Dates: start: 20120528
  19. KOGENATE FS [Suspect]
     Indication: FACTOR VIII DEFICIENCY
     Dosage: PROPHYLAXIS
     Dates: start: 20110701, end: 20120201
  20. KOGENATE FS [Suspect]
     Dosage: 4260 U
     Dates: start: 20120205
  21. KOGENATE FS [Suspect]
     Dosage: 1587 U
     Dates: start: 20120313
  22. KOGENATE FS [Suspect]
     Dosage: 1039 U
     Dates: start: 20120406
  23. KOGENATE FS [Suspect]
     Dosage: CONTINUOUS INFUSION
     Dates: start: 20120501, end: 20120501
  24. KOGENATE FS [Suspect]
     Dosage: 4260 U
     Dates: start: 20120204
  25. KOGENATE FS [Suspect]
     Dosage: 3063 U
     Dates: start: 20120206
  26. KOGENATE FS [Suspect]
     Dosage: 2078 U
     Dates: start: 20120314
  27. KOGENATE FS [Suspect]
     Dosage: 4096 U
     Dates: start: 20120316
  28. KOGENATE FS [Suspect]
     Dosage: 9351 U
     Dates: start: 20120409
  29. KOGENATE FS [Suspect]
     Dosage: 10952 U
     Dates: start: 20120528
  30. ADVATE [FACTOR VIII (ANTIHAEMOPHILIC FACTOR)] [Concomitant]
     Indication: PROPHYLAXIS
  31. KOGENATE FS [Suspect]
     Dosage: 4 IU/KG/HR CONTINUOUS INFUSION
     Dates: start: 20120301, end: 20120301
  32. KOGENATE FS [Suspect]
     Dosage: 1288 U
     Dates: start: 20120314
  33. KOGENATE FS [Suspect]
     Dosage: 4156 U
     Dates: start: 20120317
  34. KOGENATE FS [Suspect]
     Dosage: 9351 U
     Dates: start: 20120408
  35. KOGENATE FS [Suspect]
     Dosage: BOLUS DOSE
     Dates: start: 20120201, end: 20120201
  36. KOGENATE FS [Suspect]
     Dosage: 5120 U
     Dates: start: 20120313
  37. KOGENATE FS [Suspect]
     Dosage: 3072 U AND 1058 U
     Dates: start: 20120314
  38. KOGENATE FS [Suspect]
     Dosage: 4156 U,9351 U AND 2595 U
     Dates: start: 20120405

REACTIONS (2)
  - ANTI FACTOR VIII ANTIBODY POSITIVE [None]
  - HAEMORRHAGE [None]
